FAERS Safety Report 5067266-9 (Version None)
Quarter: 2006Q3

REPORT INFORMATION
  Report Type: 
  Country: None (occurrence: None)
  Receive Date: 20060726
  Receipt Date: 20060714
  Transmission Date: 20061208
  Serious: Yes (Hospitalization, Other)
  Sender: FDA-Public Use
  Company Number: 2006074064

PATIENT
  Age: 48 Year
  Sex: Male

DRUGS (1)
  1. GEODON [Suspect]
     Indication: SCHIZOPHRENIA
     Dosage: 80 MG (40 MG, 2 IN 1 D), ORAL
     Route: 048
     Dates: start: 20060101, end: 20060614

REACTIONS (4)
  - BUNDLE BRANCH BLOCK RIGHT [None]
  - DELIRIUM [None]
  - DRUG INEFFECTIVE [None]
  - THERAPY NON-RESPONDER [None]
